FAERS Safety Report 6506697-4 (Version None)
Quarter: 2009Q4

REPORT INFORMATION
  Report Type: 
  Country: None (occurrence: None)
  Receive Date: 20091221
  Receipt Date: 20091211
  Transmission Date: 20100525
  Serious: Yes (Other)
  Sender: FDA-Public Use
  Company Number: CA-ROCHE-674135

PATIENT
  Age: 48 Year
  Sex: Female

DRUGS (6)
  1. XELODA [Suspect]
     Dosage: 02 WEEKS ON AND 02 WEEKS OFF
     Route: 048
     Dates: start: 20090309, end: 20090501
  2. XELODA [Suspect]
     Dosage: 02 WEEKS ON AND 02 WEEKS OFF
     Route: 048
     Dates: start: 20090501, end: 20090901
  3. XELODA [Suspect]
     Dosage: 02 WEEKS ON AND 02 WEEKS OFF
     Route: 048
     Dates: start: 20091001, end: 20091207
  4. XELODA [Suspect]
     Dosage: 02 WEEKS ON, 03 WEEKS OFF
     Route: 048
     Dates: start: 20091207
  5. CARBOCAL [Concomitant]
     Indication: OSTEOPOROSIS PROPHYLAXIS
     Route: 048
  6. ACTONEL [Concomitant]
     Indication: OSTEOPOROSIS PROPHYLAXIS
     Route: 048

REACTIONS (2)
  - CUTANEOUS LUPUS ERYTHEMATOSUS [None]
  - PALMAR-PLANTAR ERYTHRODYSAESTHESIA SYNDROME [None]
